FAERS Safety Report 6723114-X (Version None)
Quarter: 2010Q2

REPORT INFORMATION
  Report Type: 
  Country: None (occurrence: None)
  Receive Date: 20100513
  Receipt Date: 20100503
  Transmission Date: 20101027
  Serious: Yes (Other)
  Sender: FDA-Public Use
  Company Number: US-BAYER-201014030NA

PATIENT
  Age: 32 Year
  Sex: Female

DRUGS (4)
  1. YAZ [Suspect]
     Indication: CONTRACEPTION
     Dosage: 1 TABLET/DAY
     Route: 048
     Dates: start: 20040101
  2. YAZ [Suspect]
     Dosage: 1 TABLET/DAY
     Route: 048
     Dates: start: 20090101, end: 20090101
  3. MULTI-VITAMINS [Concomitant]
     Route: 065
  4. SOLO SLIN [Concomitant]

REACTIONS (1)
  - GALLBLADDER DISORDER [None]
